FAERS Safety Report 7439948-2 (Version None)
Quarter: 2011Q2

REPORT INFORMATION
  Report Type: 
  Country: None (occurrence: None)
  Receive Date: 20110427
  Receipt Date: 20090610
  Transmission Date: 20111010
  Serious: Yes (Hospitalization, Other)
  Sender: FDA-Public Use
  Company Number: US-BAYER-200923875NA

PATIENT
  Age: 74 Year
  Sex: Female
  Weight: 62.585 kg

DRUGS (18)
  1. VISIPAQUE [Concomitant]
     Dosage: 145 ML, UNK
     Dates: start: 20070522
  2. VANCOMYCIN [Concomitant]
     Dosage: 1.5 G, UNK
     Route: 042
     Dates: start: 20070618, end: 20070620
  3. HEPARIN [Concomitant]
     Dosage: 21000 U, UNK
     Route: 042
     Dates: start: 20070618
  4. FENTANYL [Concomitant]
  5. TRASYLOL [Suspect]
     Dosage: 200 ML, LOADING DOSE
     Route: 042
     Dates: start: 20070618, end: 20070618
  6. ALBUMIN (HUMAN) [Concomitant]
     Dosage: 100 ML, UNK
     Dates: start: 20070618, end: 20070618
  7. TRASYLOL [Suspect]
     Indication: AORTIC VALVE REPLACEMENT
     Dosage: 2 ML, ONCE TEST DOSE
     Route: 042
     Dates: start: 20070618, end: 20070618
  8. RED BLOOD CELLS [Concomitant]
     Dosage: 3 U, UNK
     Dates: start: 20070618
  9. LISINOPRIL [Concomitant]
     Dosage: 40 MG, QD
     Route: 048
     Dates: start: 20040101, end: 20080101
  10. CARDIOPLEGIA [Concomitant]
     Dosage: UNK
     Dates: start: 20070618, end: 20070618
  11. OMNIPAQUE 140 [Concomitant]
     Dosage: 108 ML, UNK
     Dates: start: 20070525
  12. MANNITOL [Concomitant]
     Dosage: UNK
     Dates: start: 20070618, end: 20070618
  13. TRASYLOL [Suspect]
     Dosage: 200 ML, ONCE BYPASS PRIME
     Route: 042
     Dates: start: 20070618, end: 20070618
  14. TRASYLOL [Suspect]
     Dosage: 50 ML, Q1HR
     Route: 041
     Dates: start: 20070618, end: 20070618
  15. OMNIPAQUE 140 [Concomitant]
     Dosage: 65 ML, UNK
     Dates: start: 20070530
  16. DIGOXIN [Concomitant]
     Dosage: 1000 UNK
     Route: 042
     Dates: start: 20070618
  17. PROTAMINE SULFATE [Concomitant]
     Dosage: UNK
     Route: 042
     Dates: start: 20070618, end: 20070618
  18. VERSED [Concomitant]

REACTIONS (13)
  - CEREBROVASCULAR ACCIDENT [None]
  - MULTI-ORGAN FAILURE [None]
  - EMOTIONAL DISTRESS [None]
  - STRESS [None]
  - ANXIETY [None]
  - FEAR [None]
  - RENAL FAILURE [None]
  - INJURY [None]
  - RENAL IMPAIRMENT [None]
  - UNEVALUABLE EVENT [None]
  - ANHEDONIA [None]
  - RENAL INJURY [None]
  - PAIN [None]
